FAERS Safety Report 9444176 (Version 1)
Quarter: 2013Q3

REPORT INFORMATION
  Report Type: Spontaneous
  Country: US (occurrence: None)
  Receive Date: 20130806
  Receipt Date: 20130806
  Transmission Date: 20140515
  Serious: Yes (Other)
  Sender: FDA-Public Use
  Company Number: None

PATIENT
  Age: 40 Year
  Sex: Female
  Weight: 65.77 kg

DRUGS (5)
  1. LEXAPRO [Suspect]
     Dosage: 20MG DAILY PO
     Route: 048
     Dates: start: 201305, end: 20130625
  2. LEXAPRO [Suspect]
     Dosage: 20MG DAILY PO
     Route: 048
     Dates: start: 201305, end: 20130625
  3. LEXAPRO [Suspect]
     Dosage: 10MG DAILY PO
     Route: 048
     Dates: start: 201305, end: 20130625
  4. ZYPREXA [Concomitant]
  5. TRAZADONE [Concomitant]

REACTIONS (2)
  - Diarrhoea [None]
  - Product substitution issue [None]
